FAERS Safety Report 5843982-3 (Version None)
Quarter: 2008Q3

REPORT INFORMATION
  Report Type: 
  Country: None (occurrence: None)
  Receive Date: 20080813
  Receipt Date: 20080731
  Transmission Date: 20090109
  Serious: Yes (Hospitalization)
  Sender: FDA-Public Use
  Company Number: CH-ROCHE-579588

PATIENT
  Age: 66 Year
  Sex: Female

DRUGS (16)
  1. BONIVA [Suspect]
     Indication: OSTEOPOROSIS POSTMENOPAUSAL
     Route: 048
     Dates: start: 20060101, end: 20080301
  2. FOSAMAX [Suspect]
     Indication: OSTEOPOROSIS POSTMENOPAUSAL
     Route: 048
     Dates: start: 20010101, end: 20060101
  3. PARIET [Suspect]
     Indication: GASTROOESOPHAGEAL REFLUX DISEASE
     Route: 048
  4. CALCIMAGON [Concomitant]
     Indication: OSTEOPOROSIS POSTMENOPAUSAL
     Route: 048
  5. LIVIAL [Concomitant]
     Indication: OSTEOPOROSIS POSTMENOPAUSAL
     Route: 048
  6. BRUFEN [Concomitant]
     Route: 048
  7. DAFALGAN [Concomitant]
     Route: 048
  8. STILNOX [Concomitant]
     Indication: SLEEP DISORDER
     Route: 048
  9. TEMESTA [Concomitant]
     Indication: SLEEP DISORDER
     Dosage: FREQUENCY REPORTED AS 1 DAY
     Route: 048
  10. FLUCTINE [Concomitant]
     Dosage: FREQUENCY REPORTED AS 1 DAY
     Route: 048
  11. TRYPTIZOL [Concomitant]
     Indication: PAIN
     Dosage: FREQUENCY REPORTED AS 1 DAY
     Route: 048
  12. ATENOLOL [Concomitant]
     Indication: ESSENTIAL HYPERTENSION
     Dosage: FREQUENCY REPORTED AS 1 DAY
     Route: 048
  13. MODURETIC 5-50 [Concomitant]
     Indication: ESSENTIAL HYPERTENSION
     Dosage: FREQUENCY REPORTED AS 1 DAY
     Route: 048
  14. SINGULAIR [Concomitant]
     Indication: ASTHMA
     Dosage: FREQUENCY REPORTED AS 1 DAY
     Route: 048
     Dates: start: 20030101
  15. SERETIDE [Concomitant]
     Indication: ASTHMA
     Dosage: FREQUENCY REPORTED AS 2 DAY
     Route: 055
  16. RHINOCORT [Concomitant]
     Dosage: FREQUENCY REPORTED AS 2 DAY
     Route: 055

REACTIONS (1)
  - PATHOLOGICAL FRACTURE [None]
